FAERS Safety Report 9843503 (Version 1)
Quarter: 2013Q4

REPORT INFORMATION
  Report Type: Spontaneous
  Country: US (occurrence: None)
  Receive Date: 20131219
  Receipt Date: 20131219
  Transmission Date: 20140711
  Serious: Yes (Other)
  Sender: FDA-Public Use
  Company Number: 163-20785-12073252

PATIENT
  Age: 64 Year
  Sex: Female
  Weight: 50.3 kg

DRUGS (2)
  1. THALOMID (THALIDOMIDE) (200 MILLIGRAM, CAPSULES) [Suspect]
     Indication: BRAIN NEOPLASM MALIGNANT
     Route: 048
     Dates: start: 20120416
  2. THALOMID (THALIDOMIDE) (200 MILLIGRAM, CAPSULES) [Suspect]
     Indication: GLIOBLASTOMA MULTIFORME
     Route: 048
     Dates: start: 20120416

REACTIONS (5)
  - Hyperacusis [None]
  - Tremor [None]
  - Fatigue [None]
  - Nervousness [None]
  - Treatment noncompliance [None]
